FAERS Safety Report 4381974-4 (Version None)
Quarter: 2004Q2

REPORT INFORMATION
  Report Type: 
  Country: None (occurrence: None)
  Receive Date: 20040603
  Receipt Date: 20030610
  Transmission Date: 20050107
  Serious: Yes (Hospitalization)
  Sender: FDA-Public Use
  Company Number: 200315036US

PATIENT
  Age: 71 Year
  Sex: Male

DRUGS (4)
  1. LOVENOX [Suspect]
     Indication: DEEP VENOUS THROMBOSIS PROPHYLAXIS
     Dosage: 30 MG Q12H
     Dates: start: 20030514
  2. WARFARIN SODIUM [Concomitant]
  3. BLOOD PRESSURE MEDICATION [Concomitant]
  4. DIABETIC MEDICATION [Concomitant]

REACTIONS (3)
  - CHEST PAIN [None]
  - DYSPNOEA [None]
  - PULMONARY EMBOLISM [None]
